FAERS Safety Report 22146824 (Version 1)
Quarter: 2023Q1

REPORT INFORMATION
  Report Type: Spontaneous
  Country: BE (occurrence: BE)
  Receive Date: 20230328
  Receipt Date: 20230328
  Transmission Date: 20230418
  Serious: Yes (Hospitalization, Other)
  Sender: FDA-Public Use
  Company Number: BE-APIL-2309016US

PATIENT
  Sex: Male

DRUGS (3)
  1. BOTOX [Suspect]
     Active Substance: ONABOTULINUMTOXINA
     Indication: Oesophageal spasm
     Dosage: FOUR TIMES 20 IU
  2. BOTOX [Suspect]
     Active Substance: ONABOTULINUMTOXINA
     Dosage: FOUR TIMES 20 IU
  3. BOTOX [Suspect]
     Active Substance: ONABOTULINUMTOXINA
     Dosage: FOUR TIMES 20 IU

REACTIONS (2)
  - Infective aneurysm [Recovered/Resolved]
  - Off label use [Unknown]
